FAERS Safety Report 10244067 (Version 1)
Quarter: 2014Q2

REPORT INFORMATION
  Report Type: Spontaneous
  Country: NL (occurrence: NL)
  Receive Date: 20140618
  Receipt Date: 20140618
  Transmission Date: 20141212
  Serious: Yes (Hospitalization)
  Sender: FDA-Public Use
  Company Number: NL-PFIZER INC-2014165032

PATIENT
  Age: 61 Year
  Sex: Female
  Weight: 95 kg

DRUGS (6)
  1. DOXYCYCLINE HYCLATE [Suspect]
     Indication: DEVICE RELATED INFECTION
     Dosage: 100 MG, 2X/DAY
     Dates: start: 201311, end: 20140417
  2. PHENPROCOUMON [Interacting]
     Indication: THROMBOSIS
     Dosage: UNK
     Dates: start: 201312
  3. RIFAMPICIN [Concomitant]
  4. THYRAX [Concomitant]
     Dosage: 0.05 MG, 1X/DAY
     Dates: start: 2005
  5. THYRAX [Concomitant]
     Dosage: 0.1 MG, 1X/DAY
     Dates: start: 2005
  6. CAPTOPRIL [Concomitant]
     Dosage: 1 DF, 1X/DAY
     Dates: start: 1996

REACTIONS (4)
  - Drug interaction [Unknown]
  - Haemorrhage [Unknown]
  - Urinary tract infection [Unknown]
  - International normalised ratio increased [Unknown]
